FAERS Safety Report 8743298 (Version 2)
Quarter: 2012Q4

REPORT INFORMATION
  Report Type: Report from Study
  Country: US (occurrence: US)
  Receive Date: 20120824
  Receipt Date: 20120830
  Transmission Date: 20130627
  Serious: Yes (Other)
  Sender: FDA-Public Use
  Company Number: US-ABBOTT-12P-163-0969554-00

PATIENT
  Age: 62 Year
  Sex: Female

DRUGS (10)
  1. HUMIRA 40 MG/ 0.8 ML PRE-FILLED SYRINGE [Suspect]
     Indication: PSORIASIS
  2. LIPITOR [Suspect]
     Indication: PRODUCT USED FOR UNKNOWN INDICATION
     Dates: end: 201207
  3. ZETIA [Suspect]
     Indication: PRODUCT USED FOR UNKNOWN INDICATION
     Dates: start: 20120713
  4. LOTREL [Suspect]
     Indication: PRODUCT USED FOR UNKNOWN INDICATION
  5. NOPALEA [Concomitant]
     Indication: INFLAMMATION
     Dates: start: 20120807
  6. CARVEDILOL [Concomitant]
     Indication: PRODUCT USED FOR UNKNOWN INDICATION
  7. LOSARTAN [Concomitant]
     Indication: PRODUCT USED FOR UNKNOWN INDICATION
  8. POTASSIUM [Concomitant]
     Indication: PRODUCT USED FOR UNKNOWN INDICATION
  9. AMLODIPINE [Concomitant]
     Indication: PRODUCT USED FOR UNKNOWN INDICATION
  10. CELEXA [Concomitant]
     Indication: DEPRESSION

REACTIONS (7)
  - Angle closure glaucoma [Recovered/Resolved]
  - Psoriasis [Unknown]
  - Drug tolerance increased [Unknown]
  - Dry eye [Unknown]
  - Musculoskeletal discomfort [Unknown]
  - Urticaria [Unknown]
  - Allergic oedema [Unknown]
